FAERS Safety Report 5469759-9 (Version None)
Quarter: 2007Q3

REPORT INFORMATION
  Report Type: 
  Country: None (occurrence: None)
  Receive Date: 20070927
  Receipt Date: 20070912
  Transmission Date: 20080115
  Serious: Yes (Other)
  Sender: FDA-Public Use
  Company Number: DE-AMGEN-UK242930

PATIENT
  Sex: Female
  Weight: 52 kg

DRUGS (6)
  1. NEULASTA [Suspect]
     Indication: CHEMOTHERAPY
     Route: 058
     Dates: start: 20070613
  2. RITUXIMAB [Concomitant]
     Route: 042
     Dates: start: 20070611
  3. BENDAMUSTINE [Concomitant]
     Route: 042
     Dates: start: 20070611
  4. CO-TRIMOXAZOLE [Concomitant]
     Route: 048
     Dates: start: 20061201
  5. TAVANIC [Concomitant]
     Route: 048
     Dates: start: 20070616, end: 20070703
  6. TAVANIC [Concomitant]

REACTIONS (1)
  - REACTIVE PERFORATING COLLAGENOSIS [None]
